FAERS Safety Report 5486472-2 (Version None)
Quarter: 2007Q4

REPORT INFORMATION
  Report Type: 
  Country: None (occurrence: None)
  Receive Date: 20071016
  Receipt Date: 20071009
  Transmission Date: 20080405
  Serious: Yes (Disabling)
  Sender: FDA-Public Use
  Company Number: B0489547A

PATIENT
  Age: 56 Year
  Sex: Male

DRUGS (10)
  1. VALTREX [Suspect]
     Indication: HERPES ZOSTER
     Dosage: 1000MG PER DAY
     Route: 048
     Dates: start: 20070903, end: 20070903
  2. UNKNOWN DRUG [Concomitant]
     Route: 048
  3. NICHI E NATE [Concomitant]
     Route: 048
  4. FERROMIA [Concomitant]
     Route: 048
  5. UNKNOWN DRUG [Concomitant]
     Route: 048
  6. METHYCOBAL [Concomitant]
     Route: 048
  7. TANKARU [Concomitant]
     Route: 048
  8. AMOBAN [Concomitant]
     Route: 048
  9. ALOSENN [Concomitant]
     Route: 048
  10. UNKNOWN DRUG [Concomitant]
     Route: 048

REACTIONS (3)
  - HALLUCINATION [None]
  - VISUAL ACUITY REDUCED [None]
  - VISUAL FIELD DEFECT [None]
